FAERS Safety Report 10601645 (Version 2)
Quarter: 2014Q4

REPORT INFORMATION
  Report Type: Report from Study
  Country: KR (occurrence: None)
  Receive Date: 20141120
  Receipt Date: 20141205
  Transmission Date: 20150529
  Serious: Yes (Hospitalization, Other)
  Sender: FDA-Public Use
  Company Number: 2014-20673

PATIENT
  Age: 58 Year
  Sex: Male
  Weight: 54.9 kg

DRUGS (5)
  1. PROXYMETACAINE HYDROCHLORIDE (PROXYMETACAINE HYDROCHLORIDE) [Concomitant]
  2. TROPOCAMIDE (TROPOCAMIDE) [Concomitant]
  3. FLUORESCEIN (FLUORESCEIN) [Concomitant]
  4. INDOCYANINE GREEN (INDOCYANINE GREEN) [Concomitant]
  5. VEGF TRAP-EYE (CODE NOT BROKEN) INJECTION [Suspect]
     Active Substance: AFLIBERCEPT
     Indication: POLYPOIDAL CHOROIDAL VASCULOPATHY
     Route: 031

REACTIONS (2)
  - Senile dementia [None]
  - Depression [None]

NARRATIVE: CASE EVENT DATE: 20141025
